FAERS Safety Report 9479012 (Version 14)
Quarter: 2017Q2

REPORT INFORMATION
  Report Type: Report from Study
  Country: NO (occurrence: ES)
  Receive Date: 20130827
  Receipt Date: 20170529
  Transmission Date: 20170830
  Serious: Yes (Death, Life-Threatening, Hospitalization)
  Sender: FDA-Public Use
  Company Number: NO-ROCHE-1243717

PATIENT
  Age: 69 Year
  Sex: Male
  Weight: 81 kg

DRUGS (19)
  1. RITUXIMAB [Suspect]
     Active Substance: RITUXIMAB
     Route: 058
     Dates: start: 20130219
  2. CETRIZINE [Concomitant]
     Active Substance: CETIRIZINE HYDROCHLORIDE
     Route: 065
     Dates: start: 20120117, end: 20130611
  3. RITUXIMAB [Suspect]
     Active Substance: RITUXIMAB
     Indication: B-CELL LYMPHOMA
     Dosage: DATE OF LAST DOSE PRIOR TO SAE: 11/JUN/2013?THERAPY DISCONTINUED ON 25/JUN/2013
     Route: 058
     Dates: start: 20130117
  4. RITUXIMAB [Suspect]
     Active Substance: RITUXIMAB
     Route: 058
     Dates: start: 20130514
  5. LOSARTAN. [Concomitant]
     Active Substance: LOSARTAN
     Indication: HYPERTENSION
     Route: 065
     Dates: start: 20090101, end: 20130625
  6. PINEX FORTE [Concomitant]
     Active Substance: ACETAMINOPHEN\CODEINE PHOSPHATE
     Indication: PAIN
     Dosage: 500 MG/30 MG
     Route: 065
     Dates: start: 20130610, end: 20130610
  7. ARTHROTEC [Concomitant]
     Active Substance: DICLOFENAC SODIUM\MISOPROSTOL
     Indication: PAIN
     Route: 065
     Dates: start: 20130610, end: 20130611
  8. RITUXIMAB [Suspect]
     Active Substance: RITUXIMAB
     Indication: B-CELL LYMPHOMA
     Route: 042
     Dates: start: 20121220
  9. RITUXIMAB [Suspect]
     Active Substance: RITUXIMAB
     Route: 058
     Dates: start: 20130416
  10. MORFIN (NORWAY) [Concomitant]
     Indication: PAIN
     Route: 065
     Dates: start: 20130611, end: 20130625
  11. VOLTAREN [Concomitant]
     Active Substance: DICLOFENAC SODIUM
     Indication: PAIN
     Dosage: DAILY
     Route: 065
     Dates: start: 20130610, end: 20130610
  12. PINEX FORTE [Concomitant]
     Active Substance: ACETAMINOPHEN\CODEINE PHOSPHATE
     Indication: PAIN
     Dosage: 500MG/30 MG AS NEEDED
     Route: 065
     Dates: start: 20130610, end: 20130611
  13. RITUXIMAB [Suspect]
     Active Substance: RITUXIMAB
     Route: 058
     Dates: start: 20130319
  14. RITUXIMAB [Suspect]
     Active Substance: RITUXIMAB
     Dosage: LAST DOSE PRIOR TO SAE: 11/JUN/2013
     Route: 058
     Dates: start: 20121220
  15. ALBYL-E [Suspect]
     Active Substance: ASPIRIN\MAGNESIUM OXIDE
     Indication: POLYCYTHAEMIA VERA
     Route: 065
     Dates: start: 20070101, end: 20130625
  16. FURIX [Concomitant]
     Active Substance: FUROSEMIDE
     Indication: WEIGHT INCREASED
     Route: 065
     Dates: start: 20121221, end: 20121221
  17. PARACET (NORWAY) [Concomitant]
     Route: 065
     Dates: start: 20121220, end: 20130611
  18. SOLU-CORTEF [Concomitant]
     Active Substance: HYDROCORTISONE SODIUM SUCCINATE
     Indication: INFUSION RELATED REACTION
     Route: 065
     Dates: start: 20121220, end: 20121220
  19. PREDNISOLON [Concomitant]
     Active Substance: PREDNISOLONE
     Route: 065
     Dates: start: 20121220, end: 20130611

REACTIONS (4)
  - Pneumonia [Not Recovered/Not Resolved]
  - Thrombocytopenia [Not Recovered/Not Resolved]
  - Hypertension [Not Recovered/Not Resolved]
  - Cerebral haemorrhage [Fatal]

NARRATIVE: CASE EVENT DATE: 20130618
